FAERS Safety Report 24263861 (Version 2)
Quarter: 2024Q3

REPORT INFORMATION
  Report Type: Spontaneous
  Country: TR (occurrence: TR)
  Receive Date: 20240829
  Receipt Date: 20240911
  Transmission Date: 20241016
  Serious: Yes (Hospitalization)
  Sender: MERCK
  Company Number: TR-009507513-2408USA009517

PATIENT
  Age: 62 Year
  Sex: Male
  Weight: 95.6 kg

DRUGS (11)
  1. PEMBROLIZUMAB [Suspect]
     Active Substance: PEMBROLIZUMAB
     Indication: Non-small cell lung cancer
     Dosage: 200 MILLIGRAM, CYCLICAL
     Route: 042
     Dates: start: 20240607
  2. PEMBROLIZUMAB [Suspect]
     Active Substance: PEMBROLIZUMAB
     Indication: K-ras gene mutation
  3. CORIVA [Concomitant]
     Indication: Bronchial obstruction
     Dosage: UNK
     Dates: start: 20240424
  4. FOLIC ACID [Concomitant]
     Active Substance: FOLIC ACID
     Indication: Prophylaxis
     Dosage: UNK
     Dates: start: 20240608
  5. CYANOCOBALAMIN [Concomitant]
     Active Substance: CYANOCOBALAMIN
     Indication: Chemotherapy side effect prophylaxis
     Dosage: UNK
     Dates: start: 20240608
  6. ACETAMINOPHEN\CAFFEINE\CODEINE PHOSPHATE [Concomitant]
     Active Substance: ACETAMINOPHEN\CAFFEINE\CODEINE PHOSPHATE
     Indication: Prophylaxis
     Dosage: UNK
     Dates: start: 20240608
  7. PHENIRAMINE MALEATE [Concomitant]
     Active Substance: PHENIRAMINE MALEATE
     Indication: Chemotherapy side effect prophylaxis
     Dosage: UNK
     Dates: start: 20240812, end: 20240812
  8. PROGAS [Concomitant]
     Indication: Chemotherapy side effect prophylaxis
     Dosage: UNK
     Dates: start: 20240812, end: 20240812
  9. EMETRIL [Concomitant]
     Indication: Chemotherapy side effect prophylaxis
     Dosage: UNK
     Dates: start: 20240812, end: 20240812
  10. ISOTONIC SODIUM CHLORIDE SOLUTION [Concomitant]
     Active Substance: SODIUM CHLORIDE
     Indication: Chemotherapy side effect prophylaxis
  11. NEOFLEKS IZOTONIK SODYUM KLORUR SUDAKI SOLUSYONU [Concomitant]
     Indication: Chemotherapy side effect prophylaxis
     Dosage: UNK
     Dates: start: 20240812, end: 20240812

REACTIONS (1)
  - Stomatitis [Recovered/Resolved]

NARRATIVE: CASE EVENT DATE: 20240819
